FAERS Safety Report 6894953-X (Version None)
Quarter: 2010Q3

REPORT INFORMATION
  Report Type: 
  Country: None (occurrence: None)
  Receive Date: 20100802
  Receipt Date: 20100720
  Transmission Date: 20110219
  Serious: Yes (Other)
  Sender: FDA-Public Use
  Company Number: SI-ELI_LILLY_AND_COMPANY-SI201007005519

PATIENT
  Age: 75 Year
  Sex: Male

DRUGS (1)
  1. HUMALOG MIX 75/25 [Suspect]
     Indication: DIABETES MELLITUS
     Dosage: 20-30 IU, 3/D
     Route: 065

REACTIONS (3)
  - BLOOD GLUCOSE DECREASED [None]
  - EXPIRED DRUG ADMINISTERED [None]
  - LOSS OF CONSCIOUSNESS [None]
